FAERS Safety Report 10575969 (Version 6)
Quarter: 2015Q1

REPORT INFORMATION
  Report Type: Spontaneous
  Country: US (occurrence: US)
  Receive Date: 20141111
  Receipt Date: 20150306
  Transmission Date: 20150720
  Serious: Yes (Hospitalization, Other)
  Sender: FDA-Public Use
  Company Number: US-PFIZER INC-2014308042

PATIENT
  Age: 74 Year
  Sex: Female
  Weight: 52 kg

DRUGS (26)
  1. DELSYM [Concomitant]
     Active Substance: DEXTROMETHORPHAN
     Indication: COUGH
     Dosage: 5 ML, EVERY 6 HOURS AS NEEDED
     Route: 048
  2. SENOKOT [Concomitant]
     Active Substance: SENNOSIDES
     Indication: CONSTIPATION
     Dosage: 8.6 MG, 2X/DAY, AS NEEDED
     Route: 048
  3. VITAMIN D [Concomitant]
     Active Substance: CHOLECALCIFEROL
     Dosage: (1000 UNIT CAPSULES(S), TAKE 1 PO DAILY)
     Route: 048
  4. ADDERALL XR [Concomitant]
     Active Substance: AMPHETAMINE ASPARTATE\AMPHETAMINE SULFATE\DEXTROAMPHETAMINE SACCHARATE\DEXTROAMPHETAMINE SULFATE
     Dosage: 5 MG, DAILY (TAKE 1 PO DAILY)
  5. COLACE [Concomitant]
     Active Substance: DOCUSATE SODIUM
     Indication: CONSTIPATION
     Dosage: 100 MG, 2X/DAY, AS NEEDED
     Route: 048
  6. ASPIRIN. [Concomitant]
     Active Substance: ASPIRIN
     Dosage: 81 MG, DAILY
     Route: 048
  7. OXYMETAZOLINE [Concomitant]
     Active Substance: OXYMETAZOLINE
     Dosage: (0.05% AEROSOL , SPRAY W/PUMP TAKE 1 UNITS NASAL ROUTE AS DIRECTED.)
     Route: 045
  8. TRAZODONE HYDROCHLORIDE. [Concomitant]
     Active Substance: TRAZODONE HYDROCHLORIDE
     Dosage: 150 MG, DAILY
     Route: 048
  9. OXYMETAZOLINE HCL [Concomitant]
     Active Substance: OXYMETAZOLINE HYDROCHLORIDE
     Dosage: 1 IU, UNK (TAKE 1 UNITS NASAL ROUTE AS DIRECTED)
     Route: 045
  10. SUTENT [Suspect]
     Active Substance: SUNITINIB MALATE
     Indication: RENAL CANCER
     Dosage: 50 MG, 1X/DAY
     Route: 048
     Dates: start: 20140908, end: 20141102
  11. SUTENT [Suspect]
     Active Substance: SUNITINIB MALATE
     Dosage: 50 MG, 1X/DAY
     Route: 048
     Dates: start: 20140910, end: 20141102
  12. PRILOSEC [Concomitant]
     Active Substance: OMEPRAZOLE MAGNESIUM
     Dosage: 20 MG, 2X/DAY, (BEFORE MEALS)
     Route: 048
  13. ADVAIR DISKUS [Concomitant]
     Active Substance: FLUTICASONE PROPIONATE\SALMETEROL XINAFOATE
     Dosage: 1 DF, 2X/DAY (1 PUFF, TWICE DAILY)[FLUTICASONE PROPIONATE 500, SALMETEROL XINAFOATE 50]
  14. MILK OF MAGNESIA [Concomitant]
     Active Substance: MAGNESIUM HYDROXIDE
     Dosage: 5 ML, AS NEEDED (ORAL TAKE 1 TABLESPOONFUL)
     Route: 048
  15. SENNA [Concomitant]
     Active Substance: SENNA LEAF\SENNOSIDES\SENNOSIDES A AND B
     Dosage: 8.6 MG, DAILY
     Route: 048
  16. COUMADIN [Concomitant]
     Active Substance: WARFARIN SODIUM
     Dosage: UNK
  17. TYLENOL [Concomitant]
     Active Substance: ACETAMINOPHEN
     Indication: PYREXIA
  18. OCEAN SALINE NASAL SPRAY [Concomitant]
     Active Substance: SODIUM CHLORIDE
     Dosage: 2 DF, 4X/DAY, (2 SPRAYS BY EACH NARE, 4 TIMES DAILY)
     Route: 045
  19. DULCOLAX [Concomitant]
     Active Substance: BISACODYL OR DOCUSATE SODIUM
     Indication: CONSTIPATION
     Dosage: 1 DF, DAILY (1 SUPPOSITORY, DAILY, AS NEEDED)
     Route: 054
  20. KEFLEX [Concomitant]
     Active Substance: CEPHALEXIN
     Dosage: 500 MG, UNK, 1 CAPSULE,4 TIMES DAILY FOR 3 DAYS
     Route: 048
  21. ZOFRAN [Concomitant]
     Active Substance: ONDANSETRON HYDROCHLORIDE
     Dosage: 4 MG, 1DF, EVERY 6 HOURS AS NEEDED
     Route: 048
  22. DESYREL [Concomitant]
     Active Substance: TRAZODONE HYDROCHLORIDE
     Dosage: 25 MG, AS NEEDED (0.5 TABLETS OF 50MG, NIGHTLY AS NEEDED)
     Route: 048
  23. HYDROCODONE BITARTRATE AND ACETAMINOPHEN [Concomitant]
     Active Substance: ACETAMINOPHEN\HYDROCODONE BITARTRATE
     Indication: PAIN
     Dosage: 1 DF, UNK (HYDROCODONE-5MG, ACETAMINOPHEN-325MG) Q4H PRN
     Route: 048
  24. TYLENOL [Concomitant]
     Active Substance: ACETAMINOPHEN
     Indication: PAIN
     Dosage: 325 MG, UNK, 2 TABLETS, EVERY 4 HOURS AS NEEDED
     Route: 048
  25. TESSALON [Concomitant]
     Active Substance: BENZONATATE
     Indication: COUGH
     Dosage: 200 MG, 3X/DAY (1 CAPSULE EVERY 8 HOURS AS NEEDED)
     Route: 048
  26. PRADAXA [Concomitant]
     Active Substance: DABIGATRAN ETEXILATE MESYLATE

REACTIONS (13)
  - Constipation [Unknown]
  - Hypophagia [Unknown]
  - Diarrhoea [Unknown]
  - Disease progression [Unknown]
  - Renal cancer [Unknown]
  - Asthenia [Recovering/Resolving]
  - Epistaxis [Recovered/Resolved]
  - Disseminated intravascular coagulation [Recovered/Resolved]
  - Abdominal pain upper [Unknown]
  - Incontinence [Unknown]
  - Decubitus ulcer [Unknown]
  - Hyperglycaemia [Unknown]
  - Haemorrhagic anaemia [Recovered/Resolved]

NARRATIVE: CASE EVENT DATE: 20141102
